FAERS Safety Report 21127477 (Version 1)
Quarter: 2022Q3

REPORT INFORMATION
  Report Type: Spontaneous
  Country: US (occurrence: US)
  Receive Date: 20220725
  Receipt Date: 20220725
  Transmission Date: 20221027
  Serious: No
  Sender: FDA-Public Use
  Company Number: US-ABBVIE-21K-163-4144661-00

PATIENT
  Age: 61 Year
  Sex: Female
  Weight: 68.100 kg

DRUGS (14)
  1. SYNTHROID [Suspect]
     Active Substance: LEVOTHYROXINE SODIUM
     Indication: Autoimmune thyroiditis
     Route: 048
     Dates: start: 202004, end: 202006
  2. SYNTHROID [Suspect]
     Active Substance: LEVOTHYROXINE SODIUM
     Route: 048
     Dates: start: 202006, end: 202011
  3. SYNTHROID [Suspect]
     Active Substance: LEVOTHYROXINE SODIUM
     Route: 048
     Dates: start: 202012, end: 202104
  4. SYNTHROID [Suspect]
     Active Substance: LEVOTHYROXINE SODIUM
     Dosage: 1 TABLET MONDAY TO FRIDAY OF 37.5 MCG,50 MCG ON SATURDAY AND SUNDAY.
     Route: 048
     Dates: start: 202109, end: 202110
  5. SYNTHROID [Suspect]
     Active Substance: LEVOTHYROXINE SODIUM
     Dosage: 1 TABLET MONDAY TO FRIDAY OF 37.5 MCG THEN 50 MCG ON SATURDAY AND SUNDAY.
     Route: 048
     Dates: start: 202109, end: 202110
  6. SYNTHROID [Suspect]
     Active Substance: LEVOTHYROXINE SODIUM
     Dosage: WAS CHANGED TO 37.5 MON AND TUE THEN 50 MICROGRAMS ON SATURDAY AND SUNDAY
     Route: 048
     Dates: start: 202110
  7. SYNTHROID [Suspect]
     Active Substance: LEVOTHYROXINE SODIUM
     Dosage: WAS CHANGED TO 37.5 MON AND TUE THEN 50 MICROGRAMS ON SATURDAY AND SUNDAY
     Route: 048
     Dates: start: 202110
  8. PFIZER-BIONTECH COVID-19 VACCINE [Concomitant]
     Active Substance: TOZINAMERAN
     Indication: COVID-19 immunisation
     Dosage: PFIZER- FIRST DOSE
     Route: 030
     Dates: start: 20210421, end: 20210421
  9. PFIZER-BIONTECH COVID-19 VACCINE [Concomitant]
     Active Substance: TOZINAMERAN
     Dosage: PFIZER - SECOND DOSE
     Route: 030
     Dates: start: 20210512, end: 20210512
  10. MAGNESSIUM CARBONATE [Concomitant]
     Indication: Mineral supplementation
  11. CALCIUM [Concomitant]
     Active Substance: CALCIUM
     Indication: Mineral supplementation
  12. VITAMIN C [Concomitant]
     Active Substance: ASCORBIC ACID
     Indication: Vitamin supplementation
  13. VITAMINS [Concomitant]
     Active Substance: VITAMINS
     Indication: Vitamin supplementation
  14. VITAMIN B [Concomitant]
     Active Substance: VITAMIN B
     Indication: Vitamin supplementation

REACTIONS (3)
  - Bradycardia [Recovering/Resolving]
  - Tachycardia [Recovering/Resolving]
  - Arrhythmia [Recovering/Resolving]

NARRATIVE: CASE EVENT DATE: 20201201
